FAERS Safety Report 7640992-0 (Version None)
Quarter: 2011Q3

REPORT INFORMATION
  Report Type: 
  Country: None (occurrence: None)
  Receive Date: 20110722
  Receipt Date: 20110706
  Transmission Date: 20111222
  Serious: Yes (Hospitalization, Other)
  Sender: FDA-Public Use
  Company Number: 2011MA008447

PATIENT
  Age: 52 Year
  Sex: Female

DRUGS (7)
  1. CORTICOSTEROIDS (CORTICOSTEROIDS) [Suspect]
     Indication: ACUTE DISSEMINATED ENCEPHALOMYELITIS
  2. COTRIM [Suspect]
     Indication: URINARY TRACT INFECTION
  3. ACETATE [Concomitant]
  4. GLATIRAMER ACETATE [Concomitant]
  5. HOMEPATHIC MEDICATIONS [Concomitant]
  6. PANTOPRAZOLE [Suspect]
     Indication: ULCER
     Dosage: 20 MG, QD, PO
     Route: 048
  7. PANTOPRAZOLE [Suspect]
     Indication: PROPHYLAXIS
     Dosage: 20 MG, QD, PO
     Route: 048

REACTIONS (3)
  - CHOLESTASIS [None]
  - HEPATOTOXICITY [None]
  - HEPATITIS [None]
